FAERS Safety Report 4523815-8 (Version None)
Quarter: 2004Q4

REPORT INFORMATION
  Report Type: 
  Country: None (occurrence: None)
  Receive Date: 20041210
  Receipt Date: 20041210
  Transmission Date: 20050328
  Serious: Yes (Other)
  Sender: FDA-Public Use
  Company Number: None

PATIENT
  Age: 34 Year
  Sex: Male
  Weight: 68.0396 kg

DRUGS (1)
  1. DITROPAN XL [Suspect]
     Indication: BLADDER DISORDER
     Dosage: 1 DAILY
     Dates: start: 19990101

REACTIONS (3)
  - BLADDER DISORDER [None]
  - PHARMACEUTICAL PRODUCT COMPLAINT [None]
  - URINARY INCONTINENCE [None]
